FAERS Safety Report 21510584 (Version 3)
Quarter: 2025Q1

REPORT INFORMATION
  Report Type: Spontaneous
  Country: US (occurrence: US)
  Receive Date: 20221026
  Receipt Date: 20250130
  Transmission Date: 20250408
  Serious: Yes (Hospitalization, Other)
  Sender: TAKEDA
  Company Number: US-TAKEDA-2022TUS076803

PATIENT
  Age: 76 Year
  Sex: Female
  Weight: 45 kg

DRUGS (15)
  1. CUVITRU [Suspect]
     Active Substance: HUMAN IMMUNOGLOBULIN G
     Indication: Selective IgG subclass deficiency
     Dosage: 12 GRAM, 1/WEEK
     Dates: start: 20180801
  2. CUVITRU [Suspect]
     Active Substance: HUMAN IMMUNOGLOBULIN G
     Dosage: 12 GRAM, 1/WEEK
  3. CUVITRU [Suspect]
     Active Substance: HUMAN IMMUNOGLOBULIN G
     Dosage: 10 GRAM, 1/WEEK
  4. BUTALBITAL [Concomitant]
     Active Substance: BUTALBITAL
  5. CARISOPRODOL [Concomitant]
     Active Substance: CARISOPRODOL
  6. NITRO-DUR [Concomitant]
     Active Substance: NITROGLYCERIN
  7. NITROGLYCERIN [Concomitant]
     Active Substance: NITROGLYCERIN
  8. FLONASE [Concomitant]
     Active Substance: FLUTICASONE PROPIONATE
  9. ZYRTEC [Concomitant]
     Active Substance: CETIRIZINE HYDROCHLORIDE
  10. XOPENEX [Concomitant]
     Active Substance: LEVALBUTEROL HYDROCHLORIDE
  11. BREO ELLIPTA [Concomitant]
     Active Substance: FLUTICASONE FUROATE\VILANTEROL TRIFENATATE
  12. INCRUSE ELLIPTA [Concomitant]
     Active Substance: UMECLIDINIUM BROMIDE
  13. ZOLPIDEM [Concomitant]
     Active Substance: ZOLPIDEM TARTRATE
  14. OMEPRAZOLE [Concomitant]
     Active Substance: OMEPRAZOLE
  15. PRAVASTATIN [Concomitant]
     Active Substance: PRAVASTATIN

REACTIONS (3)
  - Hypertension [Recovered/Resolved]
  - Fatigue [Unknown]
  - Vertigo [Unknown]

NARRATIVE: CASE EVENT DATE: 20221019
